FAERS Safety Report 9495404 (Version 1)
Quarter: 2013Q3

REPORT INFORMATION
  Report Type: Report from Study
  Country: JP (occurrence: JP)
  Receive Date: 20130903
  Receipt Date: 20130903
  Transmission Date: 20140515
  Serious: Yes (Hospitalization)
  Sender: FDA-Public Use
  Company Number: PHHY2013JP095819

PATIENT
  Age: 50 Year
  Sex: Female

DRUGS (10)
  1. FTY 720 [Suspect]
     Indication: MULTIPLE SCLEROSIS
     Dosage: 0.5 MG, QD
     Route: 048
     Dates: start: 20120816, end: 20130821
  2. FTY 720 [Suspect]
     Dosage: 0.5 MG, QD
     Route: 048
     Dates: start: 20121225, end: 20130108
  3. FTY 720 [Suspect]
     Dosage: 0.5 MG, TWICE PER WEEK
     Route: 048
     Dates: start: 20130115, end: 20130129
  4. FTY 720 [Suspect]
     Dosage: 0.5 MG, QW
     Route: 048
     Dates: start: 20130130, end: 20130201
  5. FTY 720 [Suspect]
     Dosage: 0.5 MG, ONCE EVERY 6 DAYS
     Route: 048
     Dates: start: 20130202, end: 20130218
  6. FTY 720 [Suspect]
     Dosage: 0.5 MG, ONCE EVERY 5 DAYS
     Route: 048
     Dates: start: 20130219
  7. SOLU MEDROL [Suspect]
     Indication: MULTIPLE SCLEROSIS
     Dosage: 1000 MG, UNK
     Route: 042
     Dates: start: 20120822, end: 20120825
  8. LENDORMIN [Suspect]
     Indication: INSOMNIA
     Route: 048
     Dates: start: 20120825, end: 20130107
  9. AVONEX [Concomitant]
     Indication: MULTIPLE SCLEROSIS
     Route: 030
     Dates: start: 20120825, end: 20121221
  10. ADRENOCORTICOTROPHIC HORMONE [Concomitant]
     Indication: MULTIPLE SCLEROSIS
     Dosage: 1000 MG, UNK
     Dates: start: 20120822, end: 20121214

REACTIONS (2)
  - Drug eruption [Recovering/Resolving]
  - Rash [Recovering/Resolving]
